FAERS Safety Report 17160904 (Version 1)
Quarter: 2019Q4

REPORT INFORMATION
  Report Type: Spontaneous
  Country: PL (occurrence: PL)
  Receive Date: 20191216
  Receipt Date: 20191216
  Transmission Date: 20200122
  Serious: Yes (Other)
  Sender: FDA-Public Use
  Company Number: PL-SA-2019SA348954

PATIENT
  Sex: Male

DRUGS (2)
  1. OMNIC OCA [Suspect]
     Active Substance: TAMSULOSIN HYDROCHLORIDE
     Indication: LOWER URINARY TRACT SYMPTOMS
     Dosage: UNK
  2. SOLIFENACIN SUCCINATE. [Suspect]
     Active Substance: SOLIFENACIN SUCCINATE
     Indication: MICTURITION URGENCY
     Dosage: 5 MG, QD

REACTIONS (4)
  - Urinary incontinence [Recovered/Resolved]
  - Micturition urgency [Recovered/Resolved]
  - Product use in unapproved indication [Unknown]
  - Urinary retention [Recovered/Resolved]
